FAERS Safety Report 5441862-9 (Version None)
Quarter: 2007Q3

REPORT INFORMATION
  Report Type: 
  Country: None (occurrence: None)
  Receive Date: 20070830
  Receipt Date: 20070830
  Transmission Date: 20080115
  Serious: Yes (Other)
  Sender: FDA-Public Use
  Company Number: None

PATIENT
  Age: 62 Year
  Sex: Female
  Weight: 102.0593 kg

DRUGS (1)
  1. ARTHROTEC [Suspect]
     Indication: BACK PAIN
     Dosage: 1 TABLET 2 TIMES PER DAY PO
     Route: 048
     Dates: start: 20070721, end: 20070803

REACTIONS (9)
  - ABDOMINAL PAIN UPPER [None]
  - CHEST PAIN [None]
  - CHOLELITHIASIS [None]
  - GASTRITIS [None]
  - GASTROINTESTINAL PAIN [None]
  - INSOMNIA [None]
  - METRORRHAGIA [None]
  - ORAL INTAKE REDUCED [None]
  - PRURITUS [None]
